FAERS Safety Report 6321573-8 (Version None)
Quarter: 2009Q3

REPORT INFORMATION
  Report Type: 
  Country: None (occurrence: None)
  Receive Date: 20090820
  Receipt Date: 20090820
  Transmission Date: 20100115
  Serious: Yes (Other)
  Sender: FDA-Public Use
  Company Number: None

PATIENT
  Age: 2 Year
  Sex: Male
  Weight: 14.0615 kg

DRUGS (2)
  1. WALGREENS CHILDREN'S WALZYR 1MG/ML WALGREEN CO [Suspect]
     Indication: RHINORRHOEA
     Dosage: 1/2 TSP 1 PO
     Route: 048
     Dates: start: 20090818, end: 20090818
  2. WALGREENS CHILDREN'S WALZYR 1MG/ML WALGREEN CO [Suspect]
     Indication: SEASONAL ALLERGY
     Dosage: 1/2 TSP 1 PO
     Route: 048
     Dates: start: 20090818, end: 20090818

REACTIONS (4)
  - ASTHMA [None]
  - GENERALISED ERYTHEMA [None]
  - URTICARIA [None]
  - VOMITING [None]
